FAERS Safety Report 6105383-2 (Version None)
Quarter: 2009Q1

REPORT INFORMATION
  Report Type: 
  Country: None (occurrence: None)
  Receive Date: 20090306
  Receipt Date: 20090223
  Transmission Date: 20090719
  Serious: Yes (Hospitalization)
  Sender: FDA-Public Use
  Company Number: FR-PFIZER INC-2009174935

PATIENT

DRUGS (8)
  1. LYRICA [Suspect]
     Route: 048
     Dates: start: 20060101, end: 20080509
  2. XANAX [Suspect]
     Route: 048
     Dates: start: 20060101, end: 20080509
  3. PAROXETINE HYDROCHLORIDE [Suspect]
     Indication: DEPRESSION
     Route: 048
     Dates: start: 20060101, end: 20080509
  4. PIROXICAM BETADEX [Suspect]
     Route: 048
     Dates: start: 20060101, end: 20080509
  5. IRBESARTAN AND HYDROCHLOROTHIAZIDE [Suspect]
     Indication: HYPERTENSION
     Route: 048
     Dates: start: 20060101, end: 20080509
  6. ZOLPIDEM TARTRATE [Suspect]
     Indication: INSOMNIA
     Route: 048
     Dates: start: 20060101, end: 20080509
  7. TRAMADOL [Suspect]
     Dosage: UNK
     Route: 048
     Dates: start: 20060101, end: 20080509
  8. NEXIUM [Suspect]
     Dosage: UNK
     Route: 048
     Dates: start: 20060101, end: 20080509

REACTIONS (2)
  - DERMATITIS BULLOUS [None]
  - RASH MACULO-PAPULAR [None]
